FAERS Safety Report 25971701 (Version 2)
Quarter: 2025Q4

REPORT INFORMATION
  Report Type: Report from Study
  Country: US (occurrence: US)
  Receive Date: 20251029
  Receipt Date: 20251120
  Transmission Date: 20260118
  Serious: Yes (Death)
  Sender: ABBVIE
  Company Number: US-ABBVIE-6521879

PATIENT
  Age: 85 Year
  Sex: Female
  Weight: 44 kg

DRUGS (1)
  1. HUMIRA [Suspect]
     Active Substance: ADALIMUMAB
     Indication: Rheumatoid arthritis
     Dosage: FORM STRENGTH 40 MILLIGRAMS?START DATE TEXT: BEEN USING FOR SEVERAL YEARS?SOLUTION FOR INJECTION ...
     Route: 058

REACTIONS (4)
  - Acute respiratory failure [Fatal]
  - Dementia [Fatal]
  - Cardio-respiratory arrest [Fatal]
  - Gait disturbance [Unknown]

NARRATIVE: CASE EVENT DATE: 20250101
